FAERS Safety Report 4823752-5 (Version None)
Quarter: 2005Q4

REPORT INFORMATION
  Report Type: 
  Country: None (occurrence: None)
  Receive Date: 20051107
  Receipt Date: 20051025
  Transmission Date: 20060501
  Serious: Yes (Life-Threatening, Hospitalization)
  Sender: FDA-Public Use
  Company Number: 2005149494

PATIENT
  Age: 69 Year
  Sex: Male

DRUGS (6)
  1. GENOTROPIN [Suspect]
     Indication: HYPOPITUITARISM
     Dosage: 0.3 MG DAILY, SUBCUTANEOUS
     Route: 058
     Dates: start: 20031210, end: 20050926
  2. LEVOTHYROXINE SODIUM [Concomitant]
  3. DESMOPRESSIN ACETATE [Concomitant]
  4. HYDROCORTISONE [Concomitant]
  5. ANDROTARDYL (TESTOSTERONE ENANTATE) [Concomitant]
  6. ASPEGIC 1000 [Concomitant]

REACTIONS (1)
  - ANGINA PECTORIS [None]
